FAERS Safety Report 6029307-1 (Version None)
Quarter: 2009Q1

REPORT INFORMATION
  Report Type: 
  Country: None (occurrence: None)
  Receive Date: 20090106
  Receipt Date: 20081216
  Transmission Date: 20090719
  Serious: No
  Sender: FDA-Public Use
  Company Number: US-B.I. PHARMACEUTICALS,INC./RIDGEFIELD-2008-BP-18227BP

PATIENT
  Age: 82 Year
  Sex: Male

DRUGS (1)
  1. FLOMAX [Suspect]
     Dates: start: 20080925

REACTIONS (4)
  - DIZZINESS [None]
  - DRUG INEFFECTIVE [None]
  - PYREXIA [None]
  - RASH [None]
